FAERS Safety Report 9445252 (Version 1)
Quarter: 2013Q3

REPORT INFORMATION
  Report Type: Spontaneous
  Country: TR (occurrence: None)
  Receive Date: 20130802
  Receipt Date: 20130802
  Transmission Date: 20140515
  Serious: Yes (Other)
  Sender: FDA-Public Use
  Company Number: 2013P1013800

PATIENT
  Sex: 0

DRUGS (1)
  1. LITHIUM [Suspect]

REACTIONS (1)
  - Hyperparathyroidism [None]
